FAERS Safety Report 5563238-6 (Version None)
Quarter: 2007Q4

REPORT INFORMATION
  Report Type: 
  Country: None (occurrence: None)
  Receive Date: 20071217
  Receipt Date: 20071122
  Transmission Date: 20080405
  Serious: Yes (Hospitalization)
  Sender: FDA-Public Use
  Company Number: GB-BRISTOL-MYERS SQUIBB COMPANY-14014351

PATIENT
  Age: 65 Year
  Sex: Female

DRUGS (3)
  1. CETUXIMAB [Suspect]
     Indication: RECTAL CANCER
     Dosage: STRENGTH 2MG/ML.GIVEN 1 IN ONCE. ALSO 250 MG/M2, 1 IN 1 WK, STARTED ON 18-JUN-2007.
     Route: 042
     Dates: start: 20070809
  2. OXALIPLATIN [Suspect]
     Indication: RECTAL CANCER
     Route: 042
     Dates: start: 20070809
  3. CAPECITABINE [Suspect]
     Indication: RECTAL CANCER
     Dosage: 14 DAYS EVERY 3 WEEKS.
     Route: 048
     Dates: start: 20070809

REACTIONS (3)
  - HYPERCALCAEMIA [None]
  - SOMNOLENCE [None]
  - THROMBOSIS [None]
